FAERS Safety Report 6172170-9 (Version None)
Quarter: 2009Q2

REPORT INFORMATION
  Report Type: 
  Country: None (occurrence: None)
  Receive Date: 20090429
  Receipt Date: 20081006
  Transmission Date: 20091009
  Serious: No
  Sender: FDA-Public Use
  Company Number: A0751820A

PATIENT

DRUGS (2)
  1. ZOFRAN [Suspect]
     Indication: NAUSEA
     Route: 065
  2. PROMETHAZINE [Suspect]
     Indication: NAUSEA
     Route: 065

REACTIONS (1)
  - DRUG INEFFECTIVE [None]
